FAERS Safety Report 6460782-4 (Version None)
Quarter: 2009Q4

REPORT INFORMATION
  Report Type: 
  Country: None (occurrence: None)
  Receive Date: 20091125
  Receipt Date: 20091125
  Transmission Date: 20100525
  Serious: Yes (Hospitalization)
  Sender: FDA-Public Use
  Company Number: None

PATIENT
  Sex: Female
  Weight: 47.4 kg

DRUGS (2)
  1. CISPLATIN [Suspect]
     Dosage: 35 MG
  2. ALIMTA [Suspect]

REACTIONS (3)
  - NAUSEA [None]
  - SMALL INTESTINAL OBSTRUCTION [None]
  - VOMITING [None]
